FAERS Safety Report 9919976 (Version 3)
Quarter: 2014Q2

REPORT INFORMATION
  Report Type: Report from Study
  Country: US (occurrence: US)
  Receive Date: 20140224
  Receipt Date: 20140604
  Transmission Date: 20141212
  Serious: Yes (Life-Threatening, Other)
  Sender: FDA-Public Use
  Company Number: PHEH2014US003474

PATIENT
  Age: 39 Year
  Sex: Female

DRUGS (18)
  1. GILENYA [Suspect]
     Indication: MULTIPLE SCLEROSIS
     Dosage: 0.5 MG, QD
     Route: 048
     Dates: start: 20111004, end: 20131005
  2. ABILIFY [Concomitant]
     Dosage: 10 MG, UNK
  3. BACLOFEN [Concomitant]
     Dosage: 10 MG, UNK
  4. CHOLECALCIFEROL [Concomitant]
     Dosage: 50000 U, UNK
  5. COENZYME Q10 [Concomitant]
     Dosage: 100 MG, UNK
  6. DEXTRAN W/HYPROMELLOSE [Concomitant]
  7. DIAZEPAM [Concomitant]
  8. DULOXETINE [Concomitant]
  9. GABAPENTIN [Concomitant]
  10. MELATONIN [Concomitant]
  11. NAPROXEN SODIUM [Concomitant]
     Dosage: 750 MG, UNK
  12. PRAVASTATIN [Concomitant]
     Dosage: 40 MG, UNK
  13. TRAMADOL [Concomitant]
  14. MULTIVIT                           /07591901/ [Concomitant]
  15. LOTEMAX [Concomitant]
     Dosage: 0.5 %, UNK
  16. CITRACAL + D [Concomitant]
  17. CLARITIN [Concomitant]
     Dosage: 10 MG, UNK
  18. ULTRAM [Concomitant]
     Dosage: 50 MG, UNK

REACTIONS (19)
  - Extranodal marginal zone B-cell lymphoma (MALT type) [Recovering/Resolving]
  - Conjunctival hyperaemia [Recovering/Resolving]
  - Vision blurred [Unknown]
  - Eye irritation [Unknown]
  - Ocular discomfort [Unknown]
  - Refraction disorder [Unknown]
  - Meibomian gland dysfunction [Unknown]
  - Visual acuity reduced [Unknown]
  - Diplopia [Unknown]
  - Vitreous opacities [Unknown]
  - Eye discharge [Unknown]
  - Eye disorder [Recovering/Resolving]
  - Insomnia [Unknown]
  - Anxiety [Unknown]
  - Fatigue [Unknown]
  - Constipation [Unknown]
  - Nasal congestion [Unknown]
  - Conjunctivitis [Recovering/Resolving]
  - Headache [Unknown]
